FAERS Safety Report 7129955-1 (Version None)
Quarter: 2010Q4

REPORT INFORMATION
  Report Type: 
  Country: None (occurrence: None)
  Receive Date: 20101130
  Receipt Date: 20100830
  Transmission Date: 20110411
  Serious: No
  Sender: FDA-Public Use
  Company Number: US-AMGEN-KDL434800

PATIENT

DRUGS (16)
  1. ARANESP [Suspect]
     Indication: PRODUCT USED FOR UNKNOWN INDICATION
     Dosage: UNK UNK, UNK
     Dates: start: 20100827
  2. FENOFIBRATE [Concomitant]
     Dosage: UNK UNK, UNK
  3. IRON [Concomitant]
     Dosage: UNK UNK, UNK
  4. ATORVASTATIN CALCIUM [Concomitant]
     Dosage: UNK UNK, UNK
  5. ISOSORBIDE MONONITRATE [Concomitant]
     Dosage: UNK UNK, UNK
  6. TOPROL-XL [Concomitant]
     Dosage: UNK UNK, UNK
  7. METFORMIN [Concomitant]
     Dosage: UNK UNK, UNK
  8. GLIPIZIDE [Concomitant]
     Dosage: UNK UNK, UNK
  9. AMLODIPINE BESYLATE [Concomitant]
     Dosage: UNK UNK, UNK
  10. LISINOPRIL [Concomitant]
     Dosage: UNK UNK, UNK
  11. FUROSEMIDE [Concomitant]
     Dosage: UNK UNK, UNK
  12. PYRIDOXINE HYDROCHLORIDE [Concomitant]
     Dosage: UNK UNK, UNK
  13. CYANOCOBALAMIN [Concomitant]
     Dosage: UNK UNK, UNK
  14. FOLIC ACID [Concomitant]
     Dosage: UNK UNK, UNK
  15. DEXTROPROPOXYPHENE NAPSILATE W/ ACETAMINOPHEN [Concomitant]
     Dosage: UNK UNK, UNK
  16. MORPHINE [Concomitant]
     Dosage: UNK UNK, PRN

REACTIONS (5)
  - ABDOMINAL DISTENSION [None]
  - DECREASED APPETITE [None]
  - ERUCTATION [None]
  - FLATULENCE [None]
  - WEIGHT INCREASED [None]
